FAERS Safety Report 4312450-2 (Version None)
Quarter: 2004Q1

REPORT INFORMATION
  Report Type: 
  Country: None (occurrence: None)
  Receive Date: 20040305
  Receipt Date: 20040217
  Transmission Date: 20041129
  Serious: Yes (Hospitalization)
  Sender: FDA-Public Use
  Company Number: JP-ROCHE-359175

PATIENT
  Age: 15 Year
  Sex: Male
  Weight: 63 kg

DRUGS (1)
  1. TAMIFLU [Suspect]
     Route: 048
     Dates: start: 20040204, end: 20040206

REACTIONS (8)
  - ABNORMAL BEHAVIOUR [None]
  - BLOOD CREATINE PHOSPHOKINASE ABNORMAL [None]
  - C-REACTIVE PROTEIN INCREASED [None]
  - CSF CELL COUNT ABNORMAL [None]
  - DELUSION [None]
  - HALLUCINATION [None]
  - HALLUCINATION, VISUAL [None]
  - SCHIZOPHRENIA [None]
